FAERS Safety Report 4633956-2 (Version None)
Quarter: 2005Q2

REPORT INFORMATION
  Report Type: 
  Country: None (occurrence: None)
  Receive Date: 20050412
  Receipt Date: 20050412
  Transmission Date: 20051028
  Serious: No
  Sender: FDA-Public Use
  Company Number: None

PATIENT
  Sex: Male
  Weight: 74.45 kg

DRUGS (1)
  1. GEMCITABINE [Suspect]
     Dosage: 1500 MG/M2 IV OVER 150 MIN Q WK X 3 EVERY 4 WEEKS
     Route: 042
     Dates: start: 20040624

REACTIONS (9)
  - ABDOMINAL PAIN [None]
  - ATRIAL FIBRILLATION [None]
  - CARDIAC FAILURE CONGESTIVE [None]
  - CONSTIPATION [None]
  - DYSPNOEA [None]
  - GENERAL PHYSICAL HEALTH DETERIORATION [None]
  - NAUSEA [None]
  - PLEURAL EFFUSION [None]
  - PULMONARY CONGESTION [None]
